FAERS Safety Report 8099686-2 (Version None)
Quarter: 2012Q1

REPORT INFORMATION
  Report Type: 
  Country: None (occurrence: None)
  Receive Date: 20120129
  Receipt Date: 20111009
  Transmission Date: 20120608
  Serious: No
  Sender: FDA-Public Use
  Company Number: US-ABBOTT-11P-163-0862345-00

PATIENT
  Age: 29 Year
  Sex: Male

DRUGS (1)
  1. HUMIRA [Suspect]
     Indication: CROHN'S DISEASE
     Dates: start: 20110920

REACTIONS (5)
  - INSOMNIA [None]
  - WEIGHT LOSS POOR [None]
  - WEIGHT INCREASED [None]
  - ABDOMINAL PAIN [None]
  - DRUG INEFFECTIVE [None]
